FAERS Safety Report 18513115 (Version 3)
Quarter: 2020Q4

REPORT INFORMATION
  Report Type: Report from Study
  Country: BR (occurrence: BR)
  Receive Date: 20201117
  Receipt Date: 20201205
  Transmission Date: 20210114
  Serious: Yes (Hospitalization, Other)
  Sender: FDA-Public Use
  Company Number: BR-TAKEDA-BR202011800

PATIENT
  Age: 6 Year
  Sex: Male
  Weight: 38 kg

DRUGS (5)
  1. IDURSULFASE [Suspect]
     Active Substance: IDURSULFASE
     Indication: MUCOPOLYSACCHARIDOSIS II
     Dosage: 3 DOSAGE FORM, 1/WEEK
     Route: 042
     Dates: start: 20111014
  2. IDURSULFASE [Suspect]
     Active Substance: IDURSULFASE
     Dosage: UNK
     Route: 065
  3. IDURSULFASE [Suspect]
     Active Substance: IDURSULFASE
     Dosage: 3 DOSAGE FORM
     Route: 065
     Dates: start: 20200610
  4. INSULIN [Concomitant]
     Active Substance: INSULIN NOS
     Indication: TYPE 1 DIABETES MELLITUS
     Dosage: UNK
     Route: 058
  5. IDURSULFASE [Suspect]
     Active Substance: IDURSULFASE
     Dosage: 3 DOSAGE FORM (3 VIALS)
     Route: 065

REACTIONS (14)
  - Type 1 diabetes mellitus [Unknown]
  - Illness [Recovered/Resolved]
  - Epididymitis [Recovered/Resolved]
  - Incorrect dosage administered [Unknown]
  - Diabetic ketoacidosis [Unknown]
  - Hypersensitivity [Unknown]
  - Weight decreased [Unknown]
  - Pneumonia [Recovered/Resolved]
  - Osteomyelitis [Recovering/Resolving]
  - Sinusitis [Unknown]
  - Femur fracture [Recovering/Resolving]
  - Urticaria [Unknown]
  - COVID-19 [Recovering/Resolving]
  - Poor venous access [Unknown]

NARRATIVE: CASE EVENT DATE: 20160402
